FAERS Safety Report 8379926-2 (Version None)
Quarter: 2012Q2

REPORT INFORMATION
  Report Type: 
  Country: None (occurrence: None)
  Receive Date: 20120523
  Receipt Date: 20120521
  Transmission Date: 20120825
  Serious: Yes (Other)
  Sender: FDA-Public Use
  Company Number: US-PFIZER INC-2012122829

PATIENT
  Sex: Female
  Weight: 111.11 kg

DRUGS (4)
  1. SYNTHROID [Concomitant]
     Dosage: UNK
  2. PROVIGIL [Concomitant]
     Dosage: UNK
  3. ZOLOFT [Suspect]
     Indication: HEADACHE
     Dosage: 50 MG, 1X/DAY
     Route: 048
     Dates: start: 19970101
  4. SINEMET [Concomitant]
     Dosage: UNK

REACTIONS (2)
  - BLOOD LEAD INCREASED [None]
  - BLOOD MERCURY ABNORMAL [None]
